FAERS Safety Report 8509128-8 (Version None)
Quarter: 2012Q3

REPORT INFORMATION
  Report Type: 
  Country: None (occurrence: None)
  Receive Date: 20120713
  Receipt Date: 20120710
  Transmission Date: 20120928
  Serious: Yes (Other)
  Sender: FDA-Public Use
  Company Number: US-GLAXOSMITHKLINE-A0983972A

PATIENT
  Age: 46 Year
  Sex: Female

DRUGS (4)
  1. CORTICOSTEROID [Concomitant]
  2. BIRTH CONTROL PILLS [Concomitant]
  3. BUPROPION HYDROCHLORIDE [Suspect]
     Indication: DEPRESSION
     Dosage: 75MG PER DAY
     Route: 048
     Dates: start: 20090101, end: 20120501
  4. CELEXA [Concomitant]

REACTIONS (11)
  - VIITH NERVE PARALYSIS [None]
  - VIRAEMIA [None]
  - NAUSEA [None]
  - DIARRHOEA [None]
  - APHAGIA [None]
  - RETCHING [None]
  - VOMITING [None]
  - HYPERHIDROSIS [None]
  - ILL-DEFINED DISORDER [None]
  - HERPES ZOSTER [None]
  - URTICARIA [None]
